FAERS Safety Report 24434028 (Version 1)
Quarter: 2024Q4

REPORT INFORMATION
  Report Type: Spontaneous
  Country: CN (occurrence: CN)
  Receive Date: 20241014
  Receipt Date: 20241014
  Transmission Date: 20250114
  Serious: Yes (Other)
  Sender: PFIZER
  Company Number: CN-PFIZER INC-PV202400132685

PATIENT
  Age: 26 Year
  Sex: Female
  Weight: 66 kg

DRUGS (2)
  1. METHOTREXATE SODIUM [Suspect]
     Active Substance: METHOTREXATE SODIUM
     Indication: Benign hydatidiform mole
     Dosage: 26 MG, 1X/DAY
     Route: 030
     Dates: start: 20240921, end: 20240925
  2. METHOTREXATE SODIUM [Suspect]
     Active Substance: METHOTREXATE SODIUM
     Indication: Chemotherapy

REACTIONS (5)
  - Rash [Recovering/Resolving]
  - Pruritus [Recovering/Resolving]
  - Swelling [Recovering/Resolving]
  - Back pain [Recovering/Resolving]
  - Laryngeal pain [Recovering/Resolving]

NARRATIVE: CASE EVENT DATE: 20240925
